FAERS Safety Report 12372772 (Version 5)
Quarter: 2016Q3

REPORT INFORMATION
  Report Type: Report from Study
  Country: CA (occurrence: CA)
  Receive Date: 20160516
  Receipt Date: 20160902
  Transmission Date: 20161109
  Serious: Yes (Other)
  Sender: FDA-Public Use
  Company Number: PHHY2016CA007008

PATIENT
  Age: 75 Year
  Sex: Male

DRUGS (8)
  1. SANDOSTATIN LAR DEPOT [Suspect]
     Active Substance: OCTREOTIDE ACETATE
     Indication: CARCINOID TUMOUR
     Dosage: 20 MG, QMO (ONCE A MONTH)
     Route: 030
     Dates: start: 20160115, end: 20160408
  2. METOPROLOL. [Suspect]
     Active Substance: METOPROLOL
     Indication: PRODUCT USED FOR UNKNOWN INDICATION
     Dosage: UNK
     Route: 065
  3. NORVASC [Concomitant]
     Active Substance: AMLODIPINE BESYLATE
     Indication: PRODUCT USED FOR UNKNOWN INDICATION
     Dosage: UNK
     Route: 065
  4. SANDOSTATIN LAR DEPOT [Suspect]
     Active Substance: OCTREOTIDE ACETATE
     Dosage: 30 MG, QMO (EVERY 4 WEEKS)
     Route: 030
     Dates: start: 20160506, end: 20160704
  5. SANDOSTATIN LAR DEPOT [Suspect]
     Active Substance: OCTREOTIDE ACETATE
     Dosage: 40 MG, QMO
     Route: 030
     Dates: start: 20160801
  6. LIPITOR [Concomitant]
     Active Substance: ATORVASTATIN CALCIUM
     Indication: PRODUCT USED FOR UNKNOWN INDICATION
     Dosage: UNK
     Route: 065
  7. ASAPHEN [Concomitant]
     Active Substance: ASPIRIN
     Indication: PRODUCT USED FOR UNKNOWN INDICATION
     Dosage: UNK
     Route: 065
  8. SANDOSTATIN [Suspect]
     Active Substance: OCTREOTIDE ACETATE
     Indication: CARCINOID TUMOUR
     Dosage: UNK UG, QD (X 3 DAYS CONSECUTIVELY)
     Route: 058
     Dates: start: 20160111, end: 20160113

REACTIONS (6)
  - Blood pressure systolic increased [Unknown]
  - Blood pressure diastolic decreased [Unknown]
  - Therapeutic response decreased [Unknown]
  - Body temperature decreased [Unknown]
  - Diarrhoea [Unknown]
  - Haematochezia [Unknown]

NARRATIVE: CASE EVENT DATE: 2016
